FAERS Safety Report 8600711-8 (Version None)
Quarter: 2012Q3

REPORT INFORMATION
  Report Type: 
  Country: None (occurrence: None)
  Receive Date: 20120803
  Receipt Date: 20120723
  Transmission Date: 20120928
  Serious: Yes (Other)
  Sender: FDA-Public Use
  Company Number: 2012MA009286

PATIENT
  Age: 64 Year
  Sex: Female

DRUGS (7)
  1. ENALAPRIL MALEATE [Concomitant]
  2. ENALAPRIL MALEATE [Concomitant]
  3. SEDOXIL [Concomitant]
  4. DONEPEZIL HYDROCHLORIDE [Suspect]
     Indication: OFF LABEL USE
     Dosage: PO
     Route: 048
     Dates: start: 20111101, end: 20120201
  5. SEDOXIL [Concomitant]
  6. BUMETANIDE [Concomitant]
  7. S-OROPEAM [Concomitant]

REACTIONS (6)
  - CHROMATURIA [None]
  - BLOOD ALKALINE PHOSPHATASE INCREASED [None]
  - GAMMA-GLUTAMYLTRANSFERASE INCREASED [None]
  - ALPHA-1 ANTI-TRYPSIN INCREASED [None]
  - JAUNDICE [None]
  - BLOOD BILIRUBIN INCREASED [None]
